FAERS Safety Report 7571691-1 (Version None)
Quarter: 2011Q2

REPORT INFORMATION
  Report Type: 
  Country: None (occurrence: None)
  Receive Date: 20110624
  Receipt Date: 20110616
  Transmission Date: 20111010
  Serious: Yes (Other)
  Sender: FDA-Public Use
  Company Number: GB-CEPHALON-2011003089

PATIENT

DRUGS (1)
  1. FENTANYL CITRATE [Suspect]
     Indication: BONE PAIN
     Dates: start: 20110601

REACTIONS (2)
  - LOSS OF CONSCIOUSNESS [None]
  - DRUG PRESCRIBING ERROR [None]
